FAERS Safety Report 21033741 (Version 7)
Quarter: 2025Q4

REPORT INFORMATION
  Report Type: Spontaneous
  Country: EU (occurrence: EU)
  Receive Date: 20220701
  Receipt Date: 20251221
  Transmission Date: 20260117
  Serious: Yes (Hospitalization, Other)
  Sender: MYLAN
  Company Number: None

PATIENT
  Age: 56 Year
  Sex: Male
  Weight: 75.6 kg

DRUGS (120)
  1. ACETAMINOPHEN [Suspect]
     Active Substance: ACETAMINOPHEN
     Indication: Product used for unknown indication
     Dosage: UNK (PRN IF NECESSARY)
     Route: 061
  2. ACETAMINOPHEN [Suspect]
     Active Substance: ACETAMINOPHEN
     Dosage: UNK (PRN IF NECESSARY)
     Route: 048
  3. ACETAMINOPHEN [Suspect]
     Active Substance: ACETAMINOPHEN
     Dosage: UNK (PRN IF NECESSARY)
     Route: 048
  4. ACETAMINOPHEN [Suspect]
     Active Substance: ACETAMINOPHEN
     Dosage: UNK (PRN IF NECESSARY)
     Route: 061
  5. MYCOPHENOLATE MOFETIL [Suspect]
     Active Substance: MYCOPHENOLATE MOFETIL
     Indication: Prophylaxis against transplant rejection
     Dosage: 1000 MILLIGRAM, QD (1000 MILLIGRAM, QD, 500 MILLIGRAM, TWO TIMES A DAY)
     Route: 061
     Dates: start: 20220125, end: 20220503
  6. MYCOPHENOLATE MOFETIL [Suspect]
     Active Substance: MYCOPHENOLATE MOFETIL
     Dosage: 1000 MILLIGRAM, QD (1000 MILLIGRAM, QD, 500 MILLIGRAM, TWO TIMES A DAY)
     Route: 048
     Dates: start: 20220125, end: 20220503
  7. MYCOPHENOLATE MOFETIL [Suspect]
     Active Substance: MYCOPHENOLATE MOFETIL
     Dosage: 1000 MILLIGRAM, QD (1000 MILLIGRAM, QD, 500 MILLIGRAM, TWO TIMES A DAY)
     Route: 048
     Dates: start: 20220125, end: 20220503
  8. MYCOPHENOLATE MOFETIL [Suspect]
     Active Substance: MYCOPHENOLATE MOFETIL
     Dosage: 1000 MILLIGRAM, QD (1000 MILLIGRAM, QD, 500 MILLIGRAM, TWO TIMES A DAY)
     Route: 061
     Dates: start: 20220125, end: 20220503
  9. FUROSEMIDE [Suspect]
     Active Substance: FUROSEMIDE
     Indication: Product used for unknown indication
     Dosage: 40 MILLIGRAM, QD  (40 MILLIGRAM, ONCE A DAY)
     Route: 061
     Dates: start: 20211220
  10. FUROSEMIDE [Suspect]
     Active Substance: FUROSEMIDE
     Dosage: 40 MILLIGRAM, QD  (40 MILLIGRAM, ONCE A DAY)
     Route: 048
     Dates: start: 20211220
  11. FUROSEMIDE [Suspect]
     Active Substance: FUROSEMIDE
     Dosage: 40 MILLIGRAM, QD  (40 MILLIGRAM, ONCE A DAY)
     Route: 048
     Dates: start: 20211220
  12. FUROSEMIDE [Suspect]
     Active Substance: FUROSEMIDE
     Dosage: 40 MILLIGRAM, QD  (40 MILLIGRAM, ONCE A DAY)
     Route: 061
     Dates: start: 20211220
  13. AMLODIPINE BESYLATE [Suspect]
     Active Substance: AMLODIPINE BESYLATE
     Indication: Hypertension
     Dosage: 5 MILLIGRAM, QD (5 MG 1X/DAY)
     Route: 061
     Dates: start: 20220125, end: 202205
  14. AMLODIPINE BESYLATE [Suspect]
     Active Substance: AMLODIPINE BESYLATE
     Dosage: 5 MILLIGRAM, QD (5 MG 1X/DAY)
     Route: 048
     Dates: start: 20220125, end: 202205
  15. AMLODIPINE BESYLATE [Suspect]
     Active Substance: AMLODIPINE BESYLATE
     Dosage: 5 MILLIGRAM, QD (5 MG 1X/DAY)
     Route: 048
     Dates: start: 20220125, end: 202205
  16. AMLODIPINE BESYLATE [Suspect]
     Active Substance: AMLODIPINE BESYLATE
     Dosage: 5 MILLIGRAM, QD (5 MG 1X/DAY)
     Route: 061
     Dates: start: 20220125, end: 202205
  17. CALCIUM CARBONATE [Suspect]
     Active Substance: CALCIUM CARBONATE
     Indication: Vitamin supplementation
     Dosage: 2 DOSAGE FORM, QD
     Route: 061
     Dates: start: 20220125
  18. CALCIUM CARBONATE [Suspect]
     Active Substance: CALCIUM CARBONATE
     Dosage: 2 DOSAGE FORM, QD
     Route: 048
     Dates: start: 20220125
  19. CALCIUM CARBONATE [Suspect]
     Active Substance: CALCIUM CARBONATE
     Dosage: 2 DOSAGE FORM, QD
     Route: 048
     Dates: start: 20220125
  20. CALCIUM CARBONATE [Suspect]
     Active Substance: CALCIUM CARBONATE
     Dosage: 2 DOSAGE FORM, QD
     Route: 061
     Dates: start: 20220125
  21. FLUDARABINE [Suspect]
     Active Substance: FLUDARABINE PHOSPHATE
     Indication: Product used for unknown indication
     Dosage: UNK
  22. FLUDARABINE [Suspect]
     Active Substance: FLUDARABINE PHOSPHATE
     Dosage: UNK
     Route: 065
  23. FLUDARABINE [Suspect]
     Active Substance: FLUDARABINE PHOSPHATE
     Dosage: UNK
     Route: 065
  24. FLUDARABINE [Suspect]
     Active Substance: FLUDARABINE PHOSPHATE
     Dosage: UNK
  25. CALCIUM CARBONATE\CHOLECALCIFEROL [Suspect]
     Active Substance: CALCIUM CARBONATE\CHOLECALCIFEROL
     Indication: Product used for unknown indication
     Dosage: 2 DOSAGE FORM, QD (2 DOSAGE FORM, ONCE A DAY)
     Route: 061
     Dates: start: 20220125
  26. CALCIUM CARBONATE\CHOLECALCIFEROL [Suspect]
     Active Substance: CALCIUM CARBONATE\CHOLECALCIFEROL
     Dosage: 2 DOSAGE FORM, QD (2 DOSAGE FORM, ONCE A DAY)
     Route: 048
     Dates: start: 20220125
  27. CALCIUM CARBONATE\CHOLECALCIFEROL [Suspect]
     Active Substance: CALCIUM CARBONATE\CHOLECALCIFEROL
     Dosage: 2 DOSAGE FORM, QD (2 DOSAGE FORM, ONCE A DAY)
     Route: 048
     Dates: start: 20220125
  28. CALCIUM CARBONATE\CHOLECALCIFEROL [Suspect]
     Active Substance: CALCIUM CARBONATE\CHOLECALCIFEROL
     Dosage: 2 DOSAGE FORM, QD (2 DOSAGE FORM, ONCE A DAY)
     Route: 061
     Dates: start: 20220125
  29. ESOMEPRAZOLE [Suspect]
     Active Substance: ESOMEPRAZOLE
     Indication: Prophylaxis against gastrointestinal ulcer
     Dosage: 40 MILLIGRAM, QD
     Route: 061
     Dates: start: 20220125
  30. ESOMEPRAZOLE [Suspect]
     Active Substance: ESOMEPRAZOLE
     Dosage: 40 MILLIGRAM, QD
     Route: 048
     Dates: start: 20220125
  31. ESOMEPRAZOLE [Suspect]
     Active Substance: ESOMEPRAZOLE
     Dosage: 40 MILLIGRAM, QD
     Route: 048
     Dates: start: 20220125
  32. ESOMEPRAZOLE [Suspect]
     Active Substance: ESOMEPRAZOLE
     Dosage: 40 MILLIGRAM, QD
     Route: 061
     Dates: start: 20220125
  33. PREDNISONE [Suspect]
     Active Substance: PREDNISONE
     Indication: Prophylaxis against transplant rejection
     Dosage: 30 MILLIGRAM, QD (30 MILLIGRAM, ONCE A DAY)
     Route: 061
     Dates: start: 20211229
  34. PREDNISONE [Suspect]
     Active Substance: PREDNISONE
     Dosage: 30 MILLIGRAM, QD (30 MILLIGRAM, ONCE A DAY)
     Route: 048
     Dates: start: 20211229
  35. PREDNISONE [Suspect]
     Active Substance: PREDNISONE
     Dosage: 30 MILLIGRAM, QD (30 MILLIGRAM, ONCE A DAY)
     Route: 048
     Dates: start: 20211229
  36. PREDNISONE [Suspect]
     Active Substance: PREDNISONE
     Dosage: 30 MILLIGRAM, QD (30 MILLIGRAM, ONCE A DAY)
     Route: 061
     Dates: start: 20211229
  37. ESOMEPRAZOLE [Suspect]
     Active Substance: ESOMEPRAZOLE
     Indication: Prophylaxis against gastrointestinal ulcer
     Dosage: 40 MILLIGRAM, QD  (40 MILLIGRAM, ONCE A DAY)
     Route: 061
     Dates: start: 20220125
  38. ESOMEPRAZOLE [Suspect]
     Active Substance: ESOMEPRAZOLE
     Dosage: 40 MILLIGRAM, QD  (40 MILLIGRAM, ONCE A DAY)
     Route: 048
     Dates: start: 20220125
  39. ESOMEPRAZOLE [Suspect]
     Active Substance: ESOMEPRAZOLE
     Dosage: 40 MILLIGRAM, QD  (40 MILLIGRAM, ONCE A DAY)
     Route: 048
     Dates: start: 20220125
  40. ESOMEPRAZOLE [Suspect]
     Active Substance: ESOMEPRAZOLE
     Dosage: 40 MILLIGRAM, QD  (40 MILLIGRAM, ONCE A DAY)
     Route: 061
     Dates: start: 20220125
  41. FILGRASTIM [Suspect]
     Active Substance: FILGRASTIM
     Indication: Neutropenia
     Dosage: UNK (30 10 6.IU CYCLIC (5 TIMES A WEEK))
  42. FILGRASTIM [Suspect]
     Active Substance: FILGRASTIM
     Dosage: UNK (30 10 6.IU CYCLIC (5 TIMES A WEEK))
  43. FILGRASTIM [Suspect]
     Active Substance: FILGRASTIM
     Dosage: UNK (30 10 6.IU CYCLIC (5 TIMES A WEEK))
     Route: 042
  44. FILGRASTIM [Suspect]
     Active Substance: FILGRASTIM
     Dosage: UNK (30 10 6.IU CYCLIC (5 TIMES A WEEK))
     Route: 042
  45. FILGRASTIM [Suspect]
     Active Substance: FILGRASTIM
     Dosage: UNK (30 10 6.IU CYCLIC (5 TIMES A WEEK))
  46. FILGRASTIM [Suspect]
     Active Substance: FILGRASTIM
     Dosage: UNK (30 10 6.IU CYCLIC (5 TIMES A WEEK))
  47. FILGRASTIM [Suspect]
     Active Substance: FILGRASTIM
     Dosage: UNK (30 10 6.IU CYCLIC (5 TIMES A WEEK))
     Route: 042
  48. FILGRASTIM [Suspect]
     Active Substance: FILGRASTIM
     Dosage: UNK (30 10 6.IU CYCLIC (5 TIMES A WEEK))
     Route: 042
  49. CELLCEPT [Suspect]
     Active Substance: MYCOPHENOLATE MOFETIL
     Indication: Prophylaxis against transplant rejection
     Dosage: 500 MILLIGRAM, BID (500 MILLIGRAM, TWO TIMES A DAY
     Route: 061
     Dates: start: 20220125, end: 20220503
  50. CELLCEPT [Suspect]
     Active Substance: MYCOPHENOLATE MOFETIL
     Dosage: 500 MILLIGRAM, BID (500 MILLIGRAM, TWO TIMES A DAY
     Route: 048
     Dates: start: 20220125, end: 20220503
  51. CELLCEPT [Suspect]
     Active Substance: MYCOPHENOLATE MOFETIL
     Dosage: 500 MILLIGRAM, BID (500 MILLIGRAM, TWO TIMES A DAY
     Route: 048
     Dates: start: 20220125, end: 20220503
  52. CELLCEPT [Suspect]
     Active Substance: MYCOPHENOLATE MOFETIL
     Dosage: 500 MILLIGRAM, BID (500 MILLIGRAM, TWO TIMES A DAY
     Route: 061
     Dates: start: 20220125, end: 20220503
  53. BACTRIM [Suspect]
     Active Substance: SULFAMETHOXAZOLE\TRIMETHOPRIM
     Indication: Opportunistic infection prophylaxis
     Dosage: UNK, UNK (400/80MG TWICE A WEEK)
     Route: 061
  54. BACTRIM [Suspect]
     Active Substance: SULFAMETHOXAZOLE\TRIMETHOPRIM
     Dosage: UNK, UNK (400/80MG TWICE A WEEK)
     Route: 048
  55. BACTRIM [Suspect]
     Active Substance: SULFAMETHOXAZOLE\TRIMETHOPRIM
     Dosage: UNK, UNK (400/80MG TWICE A WEEK)
     Route: 048
  56. BACTRIM [Suspect]
     Active Substance: SULFAMETHOXAZOLE\TRIMETHOPRIM
     Dosage: UNK, UNK (400/80MG TWICE A WEEK)
     Route: 061
  57. CALCIUM CARBONATE [Suspect]
     Active Substance: CALCIUM CARBONATE
     Indication: Vitamin supplementation
     Dosage: 2 DOSAGE FORM, QD  (2 DOSAGE FORM, ONCE A DAY)
     Route: 061
     Dates: start: 20220125
  58. CALCIUM CARBONATE [Suspect]
     Active Substance: CALCIUM CARBONATE
     Dosage: 2 DOSAGE FORM, QD  (2 DOSAGE FORM, ONCE A DAY)
     Route: 048
     Dates: start: 20220125
  59. CALCIUM CARBONATE [Suspect]
     Active Substance: CALCIUM CARBONATE
     Dosage: 2 DOSAGE FORM, QD  (2 DOSAGE FORM, ONCE A DAY)
     Route: 048
     Dates: start: 20220125
  60. CALCIUM CARBONATE [Suspect]
     Active Substance: CALCIUM CARBONATE
     Dosage: 2 DOSAGE FORM, QD  (2 DOSAGE FORM, ONCE A DAY)
     Route: 061
     Dates: start: 20220125
  61. PREVYMIS [Suspect]
     Active Substance: LETERMOVIR
     Indication: Antiviral prophylaxis
     Dosage: 480 MILLIGRAM, QD
     Route: 061
     Dates: start: 20211220
  62. PREVYMIS [Suspect]
     Active Substance: LETERMOVIR
     Dosage: 480 MILLIGRAM, QD
     Route: 048
     Dates: start: 20211220
  63. PREVYMIS [Suspect]
     Active Substance: LETERMOVIR
     Dosage: 480 MILLIGRAM, QD
     Route: 048
     Dates: start: 20211220
  64. PREVYMIS [Suspect]
     Active Substance: LETERMOVIR
     Dosage: 480 MILLIGRAM, QD
     Route: 061
     Dates: start: 20211220
  65. URSODIOL [Suspect]
     Active Substance: URSODIOL
     Indication: Product used for unknown indication
     Dosage: 250 MILLIGRAM, BID (250 MILLIGRAM,(EVERY 12 HRS)
     Route: 061
     Dates: start: 20211220
  66. URSODIOL [Suspect]
     Active Substance: URSODIOL
     Dosage: 250 MILLIGRAM, BID (250 MILLIGRAM,(EVERY 12 HRS)
     Route: 048
     Dates: start: 20211220
  67. URSODIOL [Suspect]
     Active Substance: URSODIOL
     Dosage: 250 MILLIGRAM, BID (250 MILLIGRAM,(EVERY 12 HRS)
     Route: 048
     Dates: start: 20211220
  68. URSODIOL [Suspect]
     Active Substance: URSODIOL
     Dosage: 250 MILLIGRAM, BID (250 MILLIGRAM,(EVERY 12 HRS)
     Route: 061
     Dates: start: 20211220
  69. VALACYCLOVIR HYDROCHLORIDE [Suspect]
     Active Substance: VALACYCLOVIR HYDROCHLORIDE
     Indication: Antiviral prophylaxis
     Dosage: 500 MILLIGRAM, BID (500 MILLIGRAM, (EVERY 12 HRS)
     Route: 061
     Dates: start: 2021
  70. VALACYCLOVIR HYDROCHLORIDE [Suspect]
     Active Substance: VALACYCLOVIR HYDROCHLORIDE
     Dosage: 500 MILLIGRAM, BID (500 MILLIGRAM, (EVERY 12 HRS)
     Route: 048
     Dates: start: 2021
  71. VALACYCLOVIR HYDROCHLORIDE [Suspect]
     Active Substance: VALACYCLOVIR HYDROCHLORIDE
     Dosage: 500 MILLIGRAM, BID (500 MILLIGRAM, (EVERY 12 HRS)
     Route: 048
     Dates: start: 2021
  72. VALACYCLOVIR HYDROCHLORIDE [Suspect]
     Active Substance: VALACYCLOVIR HYDROCHLORIDE
     Dosage: 500 MILLIGRAM, BID (500 MILLIGRAM, (EVERY 12 HRS)
     Route: 061
     Dates: start: 2021
  73. ARANESP [Suspect]
     Active Substance: DARBEPOETIN ALFA
     Indication: Anaemia
     Dosage: 300 MICROGRAM, QW (SOLUTION FOR INJECTION IN PRE-FILLED SYRINGE)
     Dates: start: 20220125
  74. ARANESP [Suspect]
     Active Substance: DARBEPOETIN ALFA
     Dosage: 300 MICROGRAM, QW (SOLUTION FOR INJECTION IN PRE-FILLED SYRINGE)
     Route: 058
     Dates: start: 20220125
  75. ARANESP [Suspect]
     Active Substance: DARBEPOETIN ALFA
     Dosage: 300 MICROGRAM, QW (SOLUTION FOR INJECTION IN PRE-FILLED SYRINGE)
     Route: 058
     Dates: start: 20220125
  76. ARANESP [Suspect]
     Active Substance: DARBEPOETIN ALFA
     Dosage: 300 MICROGRAM, QW (SOLUTION FOR INJECTION IN PRE-FILLED SYRINGE)
     Dates: start: 20220125
  77. NOXAFIL [Suspect]
     Active Substance: POSACONAZOLE
     Indication: Antifungal prophylaxis
     Dosage: 300 MILLIGRAM, QD (300 MILLIGRAM, ONCE A DAY)
     Route: 061
     Dates: start: 2021
  78. NOXAFIL [Suspect]
     Active Substance: POSACONAZOLE
     Dosage: 300 MILLIGRAM, QD (300 MILLIGRAM, ONCE A DAY)
     Route: 048
     Dates: start: 2021
  79. NOXAFIL [Suspect]
     Active Substance: POSACONAZOLE
     Dosage: 300 MILLIGRAM, QD (300 MILLIGRAM, ONCE A DAY)
     Route: 048
     Dates: start: 2021
  80. NOXAFIL [Suspect]
     Active Substance: POSACONAZOLE
     Dosage: 300 MILLIGRAM, QD (300 MILLIGRAM, ONCE A DAY)
     Route: 061
     Dates: start: 2021
  81. ELTROMBOPAG OLAMINE [Suspect]
     Active Substance: ELTROMBOPAG OLAMINE
     Indication: Thrombocytopenia
     Dosage: 150 MILLIGRAM, QD
     Route: 048
     Dates: start: 20220125
  82. ELTROMBOPAG OLAMINE [Suspect]
     Active Substance: ELTROMBOPAG OLAMINE
     Dosage: 150 MILLIGRAM, QD
     Route: 061
     Dates: start: 20220125
  83. ELTROMBOPAG OLAMINE [Suspect]
     Active Substance: ELTROMBOPAG OLAMINE
     Dosage: 150 MILLIGRAM, QD
     Route: 061
     Dates: start: 20220125
  84. ELTROMBOPAG OLAMINE [Suspect]
     Active Substance: ELTROMBOPAG OLAMINE
     Dosage: 150 MILLIGRAM, QD
     Route: 048
     Dates: start: 20220125
  85. ELTROMBOPAG OLAMINE [Suspect]
     Active Substance: ELTROMBOPAG OLAMINE
     Dosage: 225 MILLIGRAM, QD
     Route: 048
     Dates: start: 20220510
  86. ELTROMBOPAG OLAMINE [Suspect]
     Active Substance: ELTROMBOPAG OLAMINE
     Dosage: 225 MILLIGRAM, QD
     Route: 061
     Dates: start: 20220510
  87. ELTROMBOPAG OLAMINE [Suspect]
     Active Substance: ELTROMBOPAG OLAMINE
     Dosage: 225 MILLIGRAM, QD
     Route: 061
     Dates: start: 20220510
  88. ELTROMBOPAG OLAMINE [Suspect]
     Active Substance: ELTROMBOPAG OLAMINE
     Dosage: 225 MILLIGRAM, QD
     Route: 048
     Dates: start: 20220510
  89. ELTROMBOPAG OLAMINE [Suspect]
     Active Substance: ELTROMBOPAG OLAMINE
     Dosage: 225 MILLIGRAM, QD (225 MILLIGRAM, ONCE A DAY)
     Route: 061
     Dates: start: 20220122
  90. ELTROMBOPAG OLAMINE [Suspect]
     Active Substance: ELTROMBOPAG OLAMINE
     Dosage: 225 MILLIGRAM, QD (225 MILLIGRAM, ONCE A DAY)
     Route: 061
     Dates: start: 20220122
  91. ELTROMBOPAG OLAMINE [Suspect]
     Active Substance: ELTROMBOPAG OLAMINE
     Dosage: 225 MILLIGRAM, QD (225 MILLIGRAM, ONCE A DAY)
     Route: 048
     Dates: start: 20220122
  92. ELTROMBOPAG OLAMINE [Suspect]
     Active Substance: ELTROMBOPAG OLAMINE
     Dosage: 225 MILLIGRAM, QD (225 MILLIGRAM, ONCE A DAY)
     Route: 048
     Dates: start: 20220122
  93. ELTROMBOPAG OLAMINE [Suspect]
     Active Substance: ELTROMBOPAG OLAMINE
     Dosage: 225 MILLIGRAM, QD (150 MG PER DAY ON 01/25/2022 INCREASED TO 225 MG)
     Route: 061
     Dates: start: 20220125
  94. ELTROMBOPAG OLAMINE [Suspect]
     Active Substance: ELTROMBOPAG OLAMINE
     Dosage: 225 MILLIGRAM, QD (150 MG PER DAY ON 01/25/2022 INCREASED TO 225 MG)
     Route: 061
     Dates: start: 20220125
  95. ELTROMBOPAG OLAMINE [Suspect]
     Active Substance: ELTROMBOPAG OLAMINE
     Dosage: 225 MILLIGRAM, QD (150 MG PER DAY ON 01/25/2022 INCREASED TO 225 MG)
     Route: 048
     Dates: start: 20220125
  96. ELTROMBOPAG OLAMINE [Suspect]
     Active Substance: ELTROMBOPAG OLAMINE
     Dosage: 225 MILLIGRAM, QD (150 MG PER DAY ON 01/25/2022 INCREASED TO 225 MG)
     Route: 048
     Dates: start: 20220125
  97. LEUCOVORIN CALCIUM [Suspect]
     Active Substance: LEUCOVORIN CALCIUM
     Indication: Haematotoxicity
     Dosage: 525 MILLIGRAM, QD (525 MILLIGRAM, ONCE A DAY)
     Route: 061
     Dates: start: 20220125
  98. LEUCOVORIN CALCIUM [Suspect]
     Active Substance: LEUCOVORIN CALCIUM
     Dosage: 525 MILLIGRAM, QD (525 MILLIGRAM, ONCE A DAY)
     Route: 048
     Dates: start: 20220125
  99. LEUCOVORIN CALCIUM [Suspect]
     Active Substance: LEUCOVORIN CALCIUM
     Dosage: 525 MILLIGRAM, QD (525 MILLIGRAM, ONCE A DAY)
     Route: 048
     Dates: start: 20220125
  100. LEUCOVORIN CALCIUM [Suspect]
     Active Substance: LEUCOVORIN CALCIUM
     Dosage: 525 MILLIGRAM, QD (525 MILLIGRAM, ONCE A DAY)
     Route: 061
     Dates: start: 20220125
  101. FUNGIZONE [Suspect]
     Active Substance: AMPHOTERICIN B
     Indication: Product used for unknown indication
     Dosage: 3 DOSAGE FORM, QD, UNK (3 MOUTHWASHES PER DAY)
     Route: 061
     Dates: start: 20211220
  102. FUNGIZONE [Suspect]
     Active Substance: AMPHOTERICIN B
     Dosage: 3 DOSAGE FORM, QD, UNK (3 MOUTHWASHES PER DAY)
     Route: 048
     Dates: start: 20211220
  103. FUNGIZONE [Suspect]
     Active Substance: AMPHOTERICIN B
     Dosage: 3 DOSAGE FORM, QD, UNK (3 MOUTHWASHES PER DAY)
     Route: 048
     Dates: start: 20211220
  104. FUNGIZONE [Suspect]
     Active Substance: AMPHOTERICIN B
     Dosage: 3 DOSAGE FORM, QD, UNK (3 MOUTHWASHES PER DAY)
     Route: 061
     Dates: start: 20211220
  105. AMPHOTERICIN B [Suspect]
     Active Substance: AMPHOTERICIN B
     Indication: Product used for unknown indication
     Dosage: UNK
     Route: 061
  106. AMPHOTERICIN B [Suspect]
     Active Substance: AMPHOTERICIN B
     Dosage: UNK
     Route: 048
  107. AMPHOTERICIN B [Suspect]
     Active Substance: AMPHOTERICIN B
     Dosage: UNK
     Route: 048
  108. AMPHOTERICIN B [Suspect]
     Active Substance: AMPHOTERICIN B
     Dosage: UNK
     Route: 061
  109. CYCLOPHOSPHAMIDE [Concomitant]
     Active Substance: CYCLOPHOSPHAMIDE
     Indication: Product used for unknown indication
     Dosage: UNK
  110. CYCLOPHOSPHAMIDE [Concomitant]
     Active Substance: CYCLOPHOSPHAMIDE
     Dosage: UNK
     Route: 065
  111. CYCLOPHOSPHAMIDE [Concomitant]
     Active Substance: CYCLOPHOSPHAMIDE
     Dosage: UNK
     Route: 065
  112. CYCLOPHOSPHAMIDE [Concomitant]
     Active Substance: CYCLOPHOSPHAMIDE
     Dosage: UNK
  113. SALICYLIC ACID [Concomitant]
     Active Substance: SALICYLIC ACID
     Indication: Product used for unknown indication
     Dosage: UNK
  114. SALICYLIC ACID [Concomitant]
     Active Substance: SALICYLIC ACID
     Dosage: UNK
     Route: 065
  115. SALICYLIC ACID [Concomitant]
     Active Substance: SALICYLIC ACID
     Dosage: UNK
     Route: 065
  116. SALICYLIC ACID [Concomitant]
     Active Substance: SALICYLIC ACID
     Dosage: UNK
  117. FLUDARABINE [Concomitant]
     Active Substance: FLUDARABINE PHOSPHATE
     Indication: Product used for unknown indication
     Dosage: UNK
  118. FLUDARABINE [Concomitant]
     Active Substance: FLUDARABINE PHOSPHATE
     Dosage: UNK
     Route: 065
  119. FLUDARABINE [Concomitant]
     Active Substance: FLUDARABINE PHOSPHATE
     Dosage: UNK
     Route: 065
  120. FLUDARABINE [Concomitant]
     Active Substance: FLUDARABINE PHOSPHATE
     Dosage: UNK

REACTIONS (4)
  - Condition aggravated [Not Recovered/Not Resolved]
  - Renal failure [Not Recovered/Not Resolved]
  - Acute kidney injury [Not Recovered/Not Resolved]
  - Overdose [Unknown]
